FAERS Safety Report 7349634-5 (Version None)
Quarter: 2011Q1

REPORT INFORMATION
  Report Type: 
  Country: None (occurrence: None)
  Receive Date: 20110314
  Receipt Date: 20100416
  Transmission Date: 20110831
  Serious: No
  Sender: FDA-Public Use
  Company Number: A0855486A

PATIENT
  Age: 44 Year
  Sex: Female

DRUGS (4)
  1. AUGMENTIN '125' [Suspect]
     Indication: BRONCHITIS
     Dosage: 875MG TWICE PER DAY
     Route: 048
     Dates: start: 20100414
  2. ACETAMINOPHEN [Concomitant]
  3. VENTOLIN [Suspect]
     Indication: BRONCHITIS
     Dosage: 2PUFF FOUR TIMES PER DAY
     Route: 055
     Dates: start: 20100414
  4. COUGH SYRUP [Concomitant]

REACTIONS (1)
  - RASH [None]
